FAERS Safety Report 9927539 (Version 1)
Quarter: 2014Q1

REPORT INFORMATION
  Report Type: Spontaneous
  Country: GB (occurrence: GB)
  Receive Date: 20140227
  Receipt Date: 20140227
  Transmission Date: 20141002
  Serious: Yes (Disabling)
  Sender: FDA-Public Use
  Company Number: GB-009507513-1402GBR011489

PATIENT
  Age: 67 Year
  Sex: Male
  Weight: 93.89 kg

DRUGS (3)
  1. SIMVASTATIN [Suspect]
     Dosage: UNK
     Route: 048
     Dates: start: 20131113
  2. ATORVASTATIN [Concomitant]
     Dosage: UNK
     Dates: start: 20140211
  3. LEVOTHYROXINE SODIUM [Concomitant]
     Route: 048

REACTIONS (1)
  - Abdominal distension [Recovered/Resolved]
